FAERS Safety Report 5797411-9 (Version None)
Quarter: 2008Q3

REPORT INFORMATION
  Report Type: 
  Country: None (occurrence: None)
  Receive Date: 20080701
  Receipt Date: 20080624
  Transmission Date: 20090109
  Serious: Yes (Hospitalization)
  Sender: FDA-Public Use
  Company Number: SE-BOEHRINGER INGELHEIM GMBH, GERMANY-2008-SW-00173SW

PATIENT
  Sex: Female
  Weight: 48 kg

DRUGS (3)
  1. CLONIDINE HCL [Suspect]
     Indication: PERINEAL PAIN
     Dosage: STRENGTH; 10 MG/ML, DOSE 3MG/H; 72MG/D
     Route: 037
     Dates: start: 20080528, end: 20080610
  2. MORPHINE [Suspect]
     Indication: PERINEAL PAIN
     Dosage: STRENGH: 0,1MG/ML DOSE: 0,3MG/H; 7,2MG/D
     Route: 037
     Dates: start: 20080528, end: 20080610
  3. MARCAINE [Suspect]
     Indication: PERINEAL PAIN
     Dosage: STRENGHT: 1MG/ML DOSE: 0,3MG/H; 7.2MG/H
     Route: 037
     Dates: start: 20080528, end: 20080610

REACTIONS (3)
  - HEADACHE [None]
  - MUSCULOSKELETAL STIFFNESS [None]
  - PYREXIA [None]
